FAERS Safety Report 18494147 (Version 1)
Quarter: 2020Q4

REPORT INFORMATION
  Report Type: Report from Study
  Country: US (occurrence: US)
  Receive Date: 20201112
  Receipt Date: 20201112
  Transmission Date: 20210114
  Serious: Yes (Hospitalization)
  Sender: FDA-Public Use
  Company Number: US-TAKEDA-2020TUS048221

PATIENT
  Sex: Female

DRUGS (1)
  1. BORTEZOMIB. [Suspect]
     Active Substance: BORTEZOMIB
     Indication: LIGHT CHAIN DISEASE
     Dosage: UNK
     Route: 065

REACTIONS (2)
  - Vision blurred [Not Recovered/Not Resolved]
  - Blood potassium decreased [Not Recovered/Not Resolved]
